FAERS Safety Report 7381375-0 (Version None)
Quarter: 2011Q1

REPORT INFORMATION
  Report Type: 
  Country: None (occurrence: None)
  Receive Date: 20110324
  Receipt Date: 20110324
  Transmission Date: 20110831
  Serious: Yes (Life-Threatening, Hospitalization)
  Sender: FDA-Public Use
  Company Number: None

PATIENT
  Age: 76 Year
  Sex: Female
  Weight: 72.5755 kg

DRUGS (1)
  1. PANTOPRAZOLE 40MG TEVA [Suspect]
     Indication: GASTROOESOPHAGEAL REFLUX DISEASE
     Dosage: 40MG 1 DAILY ORAL
     Route: 048
     Dates: start: 20091231, end: 20101216

REACTIONS (7)
  - VERTIGO [None]
  - ABASIA [None]
  - DIZZINESS [None]
  - DYSPNOEA [None]
  - SINUS ARREST [None]
  - FATIGUE [None]
  - PALPITATIONS [None]
